FAERS Safety Report 9169165 (Version 3)
Quarter: 2013Q2

REPORT INFORMATION
  Report Type: Report from Study
  Country: JP (occurrence: JP)
  Receive Date: 20130318
  Receipt Date: 20130518
  Transmission Date: 20140414
  Serious: Yes (Life-Threatening)
  Sender: FDA-Public Use
  Company Number: JP-ROCHE-1201994

PATIENT
  Age: 62 Year
  Sex: Female

DRUGS (5)
  1. METHOXY POLYETHYLENE GLYCOL-EPOETIN BETA [Suspect]
     Indication: NEPHROGENIC ANAEMIA
     Route: 042
     Dates: start: 20120124, end: 20120221
  2. METHOXY POLYETHYLENE GLYCOL-EPOETIN BETA [Suspect]
     Indication: NEPHROGENIC ANAEMIA
     Route: 042
     Dates: start: 20120320, end: 20120320
  3. METHOXY POLYETHYLENE GLYCOL-EPOETIN BETA [Suspect]
     Indication: NEPHROGENIC ANAEMIA
     Route: 042
     Dates: start: 20120417, end: 20120417
  4. METHOXY POLYETHYLENE GLYCOL-EPOETIN BETA [Suspect]
     Indication: NEPHROGENIC ANAEMIA
     Route: 042
     Dates: start: 20120522, end: 20120619
  5. METHOXY POLYETHYLENE GLYCOL-EPOETIN BETA [Suspect]
     Indication: NEPHROGENIC ANAEMIA
     Route: 042
     Dates: start: 20120717, end: 20120717

REACTIONS (5)
  - Decreased appetite [Recovered/Resolved]
  - Hypoalbuminaemia [Unknown]
  - Platelet count decreased [Unknown]
  - Gingival bleeding [Unknown]
  - Malnutrition-inflammation-atherosclerosis syndrome [Not Recovered/Not Resolved]
